FAERS Safety Report 20911667 (Version 1)
Quarter: 2022Q2

REPORT INFORMATION
  Report Type: Spontaneous
  Country: JP (occurrence: None)
  Receive Date: 20220603
  Receipt Date: 20220603
  Transmission Date: 20220721
  Serious: Yes (Death, Hospitalization)
  Sender: FDA-Public Use
  Company Number: 2022A207983

PATIENT
  Age: 75 Year
  Sex: Male
  Weight: 65.5 kg

DRUGS (8)
  1. ROSUVASTATIN [Suspect]
     Active Substance: ROSUVASTATIN
     Indication: Dyslipidaemia
     Dosage: DOSE OF 2.5
     Route: 048
     Dates: end: 20211203
  2. TRESIBA [Concomitant]
     Active Substance: INSULIN DEGLUDEC
     Route: 065
  3. PREDONINE [Concomitant]
     Active Substance: PREDNISOLONE
  4. PREDNISOLONE [Concomitant]
     Active Substance: PREDNISOLONE
     Dosage: 6 MG/DAY
     Route: 041
  5. ALENDRONATE [Concomitant]
     Active Substance: ALENDRONATE SODIUM
  6. AMLODIPINE [Concomitant]
     Active Substance: AMLODIPINE BESYLATE
     Dosage: 5 MG/DAY
  7. SULFAMETHOXAZOLE\TRIMETHOPRIM [Concomitant]
     Active Substance: SULFAMETHOXAZOLE\TRIMETHOPRIM
     Route: 048
  8. NOVORAPID [Concomitant]
     Active Substance: INSULIN ASPART

REACTIONS (1)
  - Interstitial lung disease [Fatal]

NARRATIVE: CASE EVENT DATE: 20211124
